FAERS Safety Report 8179653-0 (Version None)
Quarter: 2012Q1

REPORT INFORMATION
  Report Type: 
  Country: None (occurrence: None)
  Receive Date: 20120229
  Receipt Date: 20120229
  Transmission Date: 20120608
  Serious: Yes (Hospitalization)
  Sender: FDA-Public Use
  Company Number: None

PATIENT
  Sex: Female

DRUGS (2)
  1. PRADAXA [Suspect]
     Dosage: PRADAXA 75MG 2X A DAY
     Dates: start: 20120201
  2. PRADAXA [Suspect]
     Dosage: PRADAXA 75MG 2X A DAY
     Dates: start: 20110811

REACTIONS (1)
  - GASTRIC DISORDER [None]
